FAERS Safety Report 9458232 (Version 1)
Quarter: 2013Q3

REPORT INFORMATION
  Report Type: Spontaneous
  Country: CA (occurrence: CA)
  Receive Date: 20130814
  Receipt Date: 20130814
  Transmission Date: 20140515
  Serious: Yes (Hospitalization, Other)
  Sender: FDA-Public Use
  Company Number: CA-ABBOTT-13X-028-1117849-00

PATIENT
  Age: 47 Year
  Sex: Male

DRUGS (3)
  1. MAVIK [Suspect]
     Indication: HYPERTENSION
     Dates: start: 20130429, end: 20130629
  2. DASATINIB [Concomitant]
     Indication: CHRONIC MYELOID LEUKAEMIA
     Route: 048
  3. HYDROMORPH [Concomitant]
     Indication: PAIN
     Route: 048

REACTIONS (17)
  - Aphasia [Recovered/Resolved]
  - Angioedema [Recovered/Resolved]
  - Local swelling [Recovered/Resolved]
  - Swollen tongue [Recovered/Resolved]
  - Respiratory distress [Recovered/Resolved]
  - Stridor [Recovered/Resolved]
  - Syncope [Unknown]
  - Anaphylactic reaction [Unknown]
  - Vomiting [Not Recovered/Not Resolved]
  - Nausea [Recovered/Resolved]
  - Hyperhidrosis [Unknown]
  - Pallor [Recovered/Resolved]
  - Hypoxia [Recovered/Resolved]
  - Vomiting [Not Recovered/Not Resolved]
  - Vomiting [Recovered/Resolved]
  - Hypertension [Unknown]
  - Heart rate increased [Unknown]
